FAERS Safety Report 7602196-7 (Version None)
Quarter: 2011Q3

REPORT INFORMATION
  Report Type: 
  Country: None (occurrence: None)
  Receive Date: 20110711
  Receipt Date: 20110704
  Transmission Date: 20111222
  Serious: Yes (Hospitalization)
  Sender: FDA-Public Use
  Company Number: US-US-EMD SERONO, INC.-7018188

PATIENT
  Sex: Female
  Weight: 64 kg

DRUGS (3)
  1. REBIF [Suspect]
     Indication: MULTIPLE SCLEROSIS
     Route: 058
     Dates: start: 20090701
  2. CELEXA [Concomitant]
     Indication: VERTIGO
  3. METANX [Concomitant]
     Indication: VITAMIN SUPPLEMENTATION

REACTIONS (8)
  - ULCER [None]
  - WEIGHT DECREASED [None]
  - INSOMNIA [None]
  - GASTRITIS [None]
  - CHOLECYSTITIS INFECTIVE [None]
  - MENOPAUSE [None]
  - COLONIC POLYP [None]
  - CONFUSIONAL STATE [None]
